FAERS Safety Report 22185670 (Version 1)
Quarter: 2023Q2

REPORT INFORMATION
  Report Type: Spontaneous
  Country: US (occurrence: None)
  Receive Date: 20230406
  Receipt Date: 20230406
  Transmission Date: 20230722
  Serious: No
  Sender: FDA-Public Use
  Company Number: None

PATIENT
  Age: 52 Year
  Sex: Female
  Weight: 119.7 kg

DRUGS (7)
  1. HUMIRA [Suspect]
     Active Substance: ADALIMUMAB
     Indication: Rheumatoid arthritis
     Dosage: OTHER FREQUENCY : EVERY 2 WEEKS;?
     Route: 058
     Dates: start: 20220901
  2. ATORVASTATIN [Concomitant]
     Active Substance: ATORVASTATIN
     Dates: start: 20220830
  3. CLONIDINE [Concomitant]
     Active Substance: CLONIDINE
     Dates: start: 20220830
  4. HYDROCHLOROTHIAZIDE [Concomitant]
     Active Substance: HYDROCHLOROTHIAZIDE
     Dates: start: 20220830
  5. HYDROXYCHLOROQUINE [Concomitant]
     Active Substance: HYDROXYCHLOROQUINE
     Dates: start: 20220830
  6. LISINOPRIL [Concomitant]
     Active Substance: LISINOPRIL
     Dates: start: 20220830
  7. PAROXETINE [Concomitant]
     Active Substance: PAROXETINE
     Dates: start: 20220830

REACTIONS (4)
  - Swollen tongue [None]
  - Oral discomfort [None]
  - Blister [None]
  - Lip blister [None]

NARRATIVE: CASE EVENT DATE: 20230328
